FAERS Safety Report 11766833 (Version 1)
Quarter: 2015Q4

REPORT INFORMATION
  Report Type: Spontaneous
  Country: NL (occurrence: NL)
  Receive Date: 20151123
  Receipt Date: 20151123
  Transmission Date: 20160304
  Serious: Yes (Other)
  Sender: FDA-Public Use
  Company Number: NL-CIPLA LTD.-2015NL08814

PATIENT

DRUGS (7)
  1. IFOSFAMIDE. [Suspect]
     Active Substance: IFOSFAMIDE
     Indication: NEUROBLASTOMA
     Dosage: 3,000 MG/M2 I.V. DAY 1-2 AT 4 WEEK INTERVALS
     Route: 042
  2. TOPOTECAN [Suspect]
     Active Substance: TOPOTECAN\TOPOTECAN HYDROCHLORIDE
     Indication: NEUROBLASTOMA
     Dosage: 0.7 MG/M2 I.V. 1-HOUR INFUSION DAILY FOR 5 DAYS AT INTERVAL OF 4 WEEKS
     Route: 042
  3. I-META-IODOBENZYLGUANIDINE (131I-MIBG) [Suspect]
     Active Substance: IOBENGUANE I-131
     Indication: NEUROBLASTOMA
     Dosage: 7.4 GIGABECQUEREL (GBQ)/200 MILLICURIE (MCI) AT INTERVAL OF 4 WEEKS
     Route: 065
  4. I-META-IODOBENZYLGUANIDINE (131I-MIBG) [Suspect]
     Active Substance: IOBENGUANE I-131
     Dosage: 5.6 GBQ/150 MCI AT INTERVAL OF 4 WEEKS
     Route: 065
  5. TENIPOSIDE. [Suspect]
     Active Substance: TENIPOSIDE
     Indication: NEUROBLASTOMA
     Dosage: 150 MG/M2 I.V. DAY 4 AT 4 WEEK INTERVALS
     Route: 042
  6. CARBOPLATIN. [Suspect]
     Active Substance: CARBOPLATIN
     Indication: NEUROBLASTOMA
     Dosage: 400 MG/M2 I.V. DAY 3 AT 4 WEEK INTERVALS
     Route: 042
  7. VINCRISTINE [Suspect]
     Active Substance: VINCRISTINE
     Indication: NEUROBLASTOMA
     Dosage: 1.5 MG/M2 I.V. DAY 1 AT 4 WEEK INTERVALS
     Route: 042

REACTIONS (2)
  - Disease progression [Unknown]
  - Drug effect decreased [None]
